FAERS Safety Report 8327101-X (Version None)
Quarter: 2012Q2

REPORT INFORMATION
  Report Type: 
  Country: None (occurrence: None)
  Receive Date: 20120501
  Receipt Date: 20120302
  Transmission Date: 20120825
  Serious: No
  Sender: FDA-Public Use
  Company Number: US-SANOFI-AVENTIS-2012SA014947

PATIENT
  Age: 71 Year
  Sex: Male

DRUGS (2)
  1. APIDRA [Suspect]
     Dosage: WITH EVERY MEAL
     Route: 058
     Dates: start: 20120117, end: 20120131
  2. APIDRA [Suspect]
     Dosage: SLIDING SCALE WITH EVERY MEAL
     Route: 058
     Dates: start: 20120301

REACTIONS (3)
  - DIZZINESS [None]
  - BLOOD GLUCOSE INCREASED [None]
  - BLOOD PRESSURE DECREASED [None]
